FAERS Safety Report 5023650-0 (Version None)
Quarter: 2006Q2

REPORT INFORMATION
  Report Type: 
  Country: None (occurrence: None)
  Receive Date: 20060606
  Receipt Date: 20060522
  Transmission Date: 20061013
  Serious: Yes (Hospitalization)
  Sender: FDA-Public Use
  Company Number: SPI200600024

PATIENT
  Sex: Male

DRUGS (1)
  1. AMITIZA [Suspect]
     Indication: CONSTIPATION

REACTIONS (3)
  - CONSTIPATION [None]
  - DRUG INEFFECTIVE [None]
  - FAECALOMA [None]
